FAERS Safety Report 8915439 (Version 1)
Quarter: 2012Q4

REPORT INFORMATION
  Report Type: Report from Study
  Country: US (occurrence: US)
  Receive Date: 20121116
  Receipt Date: 20121116
  Transmission Date: 20130627
  Serious: Yes (Hospitalization)
  Sender: FDA-Public Use
  Company Number: US-ELI_LILLY_AND_COMPANY-US201211004151

PATIENT
  Age: 64 Year
  Sex: Female
  Weight: 68.03 kg

DRUGS (2)
  1. PRASUGREL HYDROCHLORIDE [Suspect]
     Dosage: UNK
     Dates: start: 20111215, end: 20121028
  2. ASPIRIN [Concomitant]
     Dosage: UNK
     Dates: end: 20121028

REACTIONS (2)
  - Ulcer haemorrhage [Unknown]
  - Faeces discoloured [Unknown]
